APPROVED DRUG PRODUCT: BLEOMYCIN SULFATE
Active Ingredient: BLEOMYCIN SULFATE
Strength: EQ 15 UNITS BASE/VIAL
Dosage Form/Route: INJECTABLE;INJECTION
Application: A209439 | Product #001
Applicant: CIPLA LTD
Approved: Mar 11, 2019 | RLD: No | RS: No | Type: DISCN